FAERS Safety Report 6624850-6 (Version None)
Quarter: 2010Q1

REPORT INFORMATION
  Report Type: 
  Country: None (occurrence: None)
  Receive Date: 20100305
  Receipt Date: 20100218
  Transmission Date: 20100710
  Serious: Yes (Death)
  Sender: FDA-Public Use
  Company Number: 2010020044

PATIENT
  Age: 24 Year
  Sex: Female
  Weight: 63.5036 kg

DRUGS (12)
  1. ONSOLIS [Suspect]
     Indication: BONE PAIN
     Dosage: TO BE TITRATED UP TO 4 X 200MG FILMS QID, BU
     Route: 002
     Dates: start: 20091223
  2. METHADONE HCL [Concomitant]
  3. DURAGESIC-100 [Concomitant]
  4. DILAUDID [Concomitant]
  5. HYDREA [Concomitant]
  6. LEXAPRO [Concomitant]
  7. LASIX [Concomitant]
  8. K-DUR (POTASSIUM) [Concomitant]
  9. ACTIGALL [Concomitant]
  10. FOLIC ACID [Concomitant]
  11. BENADRYL [Concomitant]
  12. VITAMIN D [Concomitant]

REACTIONS (1)
  - HEPATIC FAILURE [None]
